FAERS Safety Report 10147292 (Version 1)
Quarter: 2014Q2

REPORT INFORMATION
  Report Type: Spontaneous
  Country: US (occurrence: US)
  Receive Date: 20140501
  Receipt Date: 20140501
  Transmission Date: 20141212
  Serious: No
  Sender: FDA-Public Use
  Company Number: US-SA-2014SA008321

PATIENT
  Age: 40 Year
  Sex: 0
  Weight: 54 kg

DRUGS (12)
  1. HECTOROL [Suspect]
     Indication: PRODUCT USED FOR UNKNOWN INDICATION
     Route: 042
     Dates: start: 20131228, end: 20140103
  2. AMLODIPINE [Concomitant]
  3. HYDRALAZINE [Concomitant]
  4. INSULIN [Concomitant]
     Dosage: DOSE:6 UNIT(S)
  5. LEVEMIR [Concomitant]
     Dosage: DOSE:9 UNIT(S)
  6. LISINOPRIL [Concomitant]
  7. FOLIC ACID [Concomitant]
     Dosage: 1 TABLET
  8. METOPROLOL [Concomitant]
  9. NOVOLOG [Concomitant]
  10. RENA-VITE [Concomitant]
     Dosage: 1 TABLET
  11. TUMS [Concomitant]
     Dosage: 3-4 TABLETS
  12. CALCIUM ACETATE [Concomitant]

REACTIONS (3)
  - Hypersensitivity [Recovered/Resolved]
  - Back pain [Recovered/Resolved]
  - Restlessness [Recovered/Resolved]
